FAERS Safety Report 6346593-9 (Version None)
Quarter: 2009Q3

REPORT INFORMATION
  Report Type: 
  Country: None (occurrence: None)
  Receive Date: 20090828
  Receipt Date: 20090824
  Transmission Date: 20100115
  Serious: Yes (Other)
  Sender: FDA-Public Use
  Company Number: A0803714A

PATIENT
  Age: 76 Year
  Sex: Male

DRUGS (1)
  1. ASPIRIN [Suspect]
     Indication: ANTICOAGULANT THERAPY
     Dosage: 325 MG/AT NIGHT / ORAL
     Route: 048
     Dates: end: 20090823

REACTIONS (4)
  - CONSTIPATION [None]
  - DIARRHOEA [None]
  - EPISTAXIS [None]
  - RECTAL HAEMORRHAGE [None]
